FAERS Safety Report 23040612 (Version 4)
Quarter: 2023Q4

REPORT INFORMATION
  Report Type: Report from Study
  Country: US (occurrence: US)
  Receive Date: 20231006
  Receipt Date: 20231208
  Transmission Date: 20240110
  Serious: No
  Sender: FDA-Public Use
  Company Number: US-002147023-NVSC2023US216055

PATIENT
  Sex: Female

DRUGS (1)
  1. KISQALI [Suspect]
     Active Substance: RIBOCICLIB
     Indication: Product used for unknown indication
     Dosage: UNK
     Route: 065
     Dates: start: 20230410

REACTIONS (9)
  - Sciatica [Unknown]
  - Fatigue [Unknown]
  - Nausea [Unknown]
  - Vulvovaginal discomfort [Unknown]
  - Skin odour abnormal [Unknown]
  - Joint swelling [Unknown]
  - Contusion [Unknown]
  - Alopecia [Unknown]
  - White blood cell count abnormal [Unknown]
